FAERS Safety Report 9516473 (Version 1)
Quarter: 2013Q1

REPORT INFORMATION
  Report Type: Spontaneous
  Country: US (occurrence: None)
  Receive Date: 20130305
  Receipt Date: 20130305
  Transmission Date: 20140127
  Serious: Yes (Other)
  Sender: FDA-Public Use
  Company Number: 163-21880-12011963

PATIENT
  Age: 77 Year
  Sex: Female
  Weight: 57.61 kg

DRUGS (3)
  1. REVLIMID [Suspect]
     Indication: MYELODYSPLASTIC SYNDROME
     Dosage: 10 MG, 1 IN 1 D, PO
     Dates: start: 20110805, end: 20120116
  2. TOPROL (METOPROLOL SUCCINATE) [Concomitant]
  3. MULTAQ (DRONEDARONE HYDROCHLORIDE) [Concomitant]

REACTIONS (1)
  - Full blood count decreased [None]
